FAERS Safety Report 6761938-3 (Version None)
Quarter: 2010Q2

REPORT INFORMATION
  Report Type: 
  Country: None (occurrence: None)
  Receive Date: 20100607
  Receipt Date: 20100525
  Transmission Date: 20101027
  Serious: Yes (Hospitalization)
  Sender: FDA-Public Use
  Company Number: 2010AP001028

PATIENT
  Age: 80 Year
  Sex: Female

DRUGS (8)
  1. ENALAPRIL MALEATE [Suspect]
     Indication: HYPERTENSION
     Dosage: 5 MG; QD, 10 MG; QD
  2. LEVOFLOXACIN [Suspect]
     Indication: PNEUMONIA
     Dosage: 500 MG; QD
  3. GUAIFENESIN [Concomitant]
  4. ACETAMINOPHEN [Concomitant]
  5. ALENDRONIC ACID [Concomitant]
  6. CALCIUM CARBONATE [Concomitant]
  7. HYDROCHLOROTHIAZIDE [Concomitant]
  8. CODEINE SULFATE [Suspect]
     Indication: COUGH

REACTIONS (10)
  - CLOSTRIDIUM DIFFICILE COLITIS [None]
  - CONDITION AGGRAVATED [None]
  - COUGH [None]
  - DELIRIUM [None]
  - DRUG PRESCRIBING ERROR [None]
  - ENTEROCOLITIS [None]
  - LETHARGY [None]
  - PNEUMONIA [None]
  - PYREXIA [None]
  - THERAPEUTIC RESPONSE DECREASED [None]
